FAERS Safety Report 10149906 (Version 7)
Quarter: 2020Q1

REPORT INFORMATION
  Report Type: Report from Study
  Country: US (occurrence: US)
  Receive Date: 20140502
  Receipt Date: 20200224
  Transmission Date: 20200409
  Serious: Yes (Other)
  Sender: FDA-Public Use
  Company Number: US-SA-2013SA133912

PATIENT
  Age: 52 Year
  Sex: Female

DRUGS (26)
  1. CALCIUM CARBONATE. [Concomitant]
     Active Substance: CALCIUM CARBONATE
     Dosage: DOSE: 500
  2. FENOFIBRATE. [Concomitant]
     Active Substance: FENOFIBRATE
     Dosage: 43 MG,UNK
  3. TERIFLUNOMIDE. [Suspect]
     Active Substance: TERIFLUNOMIDE
     Indication: MULTIPLE SCLEROSIS
     Dosage: 14 MG,QD
     Route: 048
     Dates: start: 20131214, end: 201502
  4. MAGNESIUM [Concomitant]
     Active Substance: MAGNESIUM
     Dosage: 300 MG,UNK
  5. TRAMADOL. [Concomitant]
     Active Substance: TRAMADOL
     Dosage: 50 MG,UNK
  6. TRAZODONE [Concomitant]
     Active Substance: TRAZODONE HYDROCHLORIDE
     Indication: INSOMNIA
  7. HUMALOG [Concomitant]
     Active Substance: INSULIN LISPRO
     Dosage: DOSE: 75-25 75-25/M
  8. RANITIDINE. [Concomitant]
     Active Substance: RANITIDINE
     Dosage: 150 MG,UNK
  9. BENADRYL [Concomitant]
     Active Substance: DIPHENHYDRAMINE HYDROCHLORIDE
     Dosage: 25 MG,UNK
  10. FISH OIL [Concomitant]
     Active Substance: FISH OIL
     Dosage: 500 MG,UNK
  11. PROZAC [Concomitant]
     Active Substance: FLUOXETINE HYDROCHLORIDE
     Dosage: 10 MG,UNK
  12. ASCORBIC ACID. [Concomitant]
     Active Substance: ASCORBIC ACID
     Dosage: 500 MG,UNK
  13. TERIFLUNOMIDE. [Suspect]
     Active Substance: TERIFLUNOMIDE
     Dosage: 14 MG,QD
     Route: 048
     Dates: start: 2015
  14. CRESTOR [Concomitant]
     Active Substance: ROSUVASTATIN CALCIUM
     Dosage: 10 MG,UNK
  15. LEVOXYL [Concomitant]
     Active Substance: LEVOTHYROXINE SODIUM
     Dosage: 100 UG,UNK
  16. METOPROLOL TARTRATE. [Concomitant]
     Active Substance: METOPROLOL TARTRATE
     Dosage: 25 MG,UNK
  17. NABUMETONE. [Concomitant]
     Active Substance: NABUMETONE
     Dosage: 500 MG,UNK
  18. ERGOCALCIFEROL. [Concomitant]
     Active Substance: ERGOCALCIFEROL
     Dosage: 10000 DF,UNK
  19. ALEVE [Concomitant]
     Active Substance: NAPROXEN SODIUM
     Dosage: 220 MG,UNK
  20. DOCOSAHEXANOIC ACID [Concomitant]
     Active Substance: DOCONEXENT
     Dosage: 100 MG,UNK
  21. EZETIMIBE. [Concomitant]
     Active Substance: EZETIMIBE
     Indication: BLOOD CHOLESTEROL INCREASED
  22. TRAZODONE [Concomitant]
     Active Substance: TRAZODONE HYDROCHLORIDE
     Indication: SLEEP DISORDER
  23. RELPAX [Concomitant]
     Active Substance: ELETRIPTAN HYDROBROMIDE
     Dosage: 20 MG,UNK
  24. CINNAMOMUM VERUM OIL [Concomitant]
     Dosage: 500 MG,UNK
  25. IBUPROFEN. [Concomitant]
     Active Substance: IBUPROFEN
     Dosage: 800 MG,UNK
  26. WELLBUTRIN [Concomitant]
     Active Substance: BUPROPION HYDROCHLORIDE
     Dosage: 75 MG,UNK

REACTIONS (19)
  - Blood glucose increased [Recovered/Resolved]
  - Back pain [Unknown]
  - Vitamin D decreased [Recovered/Resolved]
  - Multiple sclerosis relapse [Unknown]
  - Depression [Recovering/Resolving]
  - Hypertension [Recovering/Resolving]
  - Feeling hot [Unknown]
  - Urinary retention [Recovering/Resolving]
  - Vertigo [Recovered/Resolved]
  - Affect lability [Unknown]
  - Fatigue [Unknown]
  - Urinary tract disorder [Recovering/Resolving]
  - Chronic kidney disease [Recovering/Resolving]
  - Dizziness [Unknown]
  - Memory impairment [Unknown]
  - Dysuria [Unknown]
  - Pain [Recovering/Resolving]
  - Tension headache [Recovering/Resolving]
  - Nausea [Recovered/Resolved]

NARRATIVE: CASE EVENT DATE: 2013
